FAERS Safety Report 24875790 (Version 2)
Quarter: 2025Q1

REPORT INFORMATION
  Report Type: Spontaneous
  Country: US (occurrence: None)
  Receive Date: 20250122
  Receipt Date: 20250123
  Transmission Date: 20250408
  Serious: Yes (Other)
  Sender: MAIA PHARMACEUTICALS
  Company Number: US-MAIA Pharmaceuticals, Inc.-MAI202501-000020

PATIENT
  Age: 49 Year
  Sex: Male

DRUGS (2)
  1. LEVOTHYROXINE SODIUM [Suspect]
     Active Substance: LEVOTHYROXINE SODIUM
     Indication: Thyroid hormone replacement therapy
     Route: 065
  2. LEVOTHYROXINE SODIUM [Suspect]
     Active Substance: LEVOTHYROXINE SODIUM
     Route: 065

REACTIONS (3)
  - Acute pulmonary oedema [Unknown]
  - Supraventricular tachycardia [Recovered/Resolved]
  - Product use in unapproved indication [Unknown]
